FAERS Safety Report 24907586 (Version 1)
Quarter: 2025Q1

REPORT INFORMATION
  Report Type: Spontaneous
  Country: ES (occurrence: ES)
  Receive Date: 20250131
  Receipt Date: 20250131
  Transmission Date: 20250408
  Serious: Yes (Hospitalization)
  Sender: NOVARTIS
  Company Number: None

PATIENT
  Age: 60 Year
  Sex: Female

DRUGS (2)
  1. MYFORTIC [Suspect]
     Active Substance: MYCOPHENOLATE SODIUM
     Indication: Autoimmune pericarditis
     Dosage: 360 MG, Q12H (1 COMPRIMIDO CADA 12 HORAS)
     Route: 048
     Dates: start: 20240614, end: 20241213
  2. PREDNISONE [Suspect]
     Active Substance: PREDNISONE
     Indication: Autoimmune pericarditis
     Dosage: 10 MG, Q24H (1 COMPRIMIDO AL D?A)
     Route: 048
     Dates: start: 20240201

REACTIONS (2)
  - Cytomegalovirus colitis [Recovered/Resolved]
  - Cytomegalovirus hepatitis [Recovered/Resolved]

NARRATIVE: CASE EVENT DATE: 20241213
